FAERS Safety Report 16819135 (Version 3)
Quarter: 2020Q1

REPORT INFORMATION
  Report Type: Report from Study
  Country: TW (occurrence: TW)
  Receive Date: 20190917
  Receipt Date: 20200219
  Transmission Date: 20200409
  Serious: Yes (Life-Threatening, Hospitalization)
  Sender: FDA-Public Use
  Company Number: TW-CELGENEUS-TWN-20190904232

PATIENT
  Age: 65 Year
  Sex: Male

DRUGS (18)
  1. NAB-PACLITAXEL [Suspect]
     Active Substance: PACLITAXEL
     Indication: NON-SMALL CELL LUNG CANCER STAGE IV
     Dosage: 164 MG
     Route: 041
     Dates: start: 20190723, end: 20190723
  2. RASITOL [Concomitant]
     Indication: HYPERTENSION
     Route: 048
     Dates: start: 20190629
  3. RASITOL [Concomitant]
     Dosage: 40 MILLIGRAM
     Route: 048
     Dates: start: 20190731
  4. MEGEST [Concomitant]
     Indication: DECREASED APPETITE
     Route: 048
     Dates: start: 20190703, end: 20190813
  5. SPIRONOLACTONE. [Concomitant]
     Active Substance: SPIRONOLACTONE
     Indication: HYPERTENSION
     Dosage: 50 MILLIGRAM
     Route: 048
     Dates: start: 20190731, end: 20190810
  6. ZODENOX [Concomitant]
     Indication: INSOMNIA
     Dosage: 10 MILLIGRAM
     Route: 048
     Dates: start: 20190629, end: 20190703
  7. VERAPAMIL HYDROCHLORIDE. [Concomitant]
     Active Substance: VERAPAMIL HYDROCHLORIDE
     Indication: HYPERTENSION
     Route: 065
     Dates: start: 20190629
  8. PARAMOL [Concomitant]
     Indication: CHEST PAIN
     Dosage: 1500 MILLIGRAM
     Route: 048
     Dates: start: 20190730, end: 20190813
  9. CARBOPLATIN. [Suspect]
     Active Substance: CARBOPLATIN
     Indication: NON-SMALL CELL LUNG CANCER STAGE IV
     Dosage: 622.3 MG
     Route: 041
     Dates: start: 20190723, end: 20190723
  10. ACTEIN [Concomitant]
     Indication: SPUTUM DECREASED
     Route: 048
     Dates: start: 20190629
  11. MEDICON-A [Concomitant]
     Indication: HAEMOPTYSIS
     Dosage: 60 MILLIGRAM
     Route: 048
     Dates: start: 20190703, end: 20190813
  12. TRANSAMIN [Concomitant]
     Active Substance: TRANEXAMIC ACID
     Indication: HAEMOPTYSIS
     Route: 048
     Dates: start: 20190703
  13. MEDI4736 [Suspect]
     Active Substance: DURVALUMAB
     Indication: NON-SMALL CELL LUNG CANCER STAGE IV
     Dosage: 1500 MG
     Route: 042
     Dates: start: 20190723, end: 20190723
  14. ACTEIN [Concomitant]
     Dosage: 1200 MILLIGRAM
     Route: 048
     Dates: start: 20190730, end: 20190813
  15. TRANSAMIN [Concomitant]
     Active Substance: TRANEXAMIC ACID
     Dosage: 750 MILLIGRAM
     Route: 048
     Dates: start: 20190730, end: 20190806
  16. DILTIAZEM. [Concomitant]
     Active Substance: DILTIAZEM
     Indication: SINUS TACHYCARDIA
     Dosage: 90 MILLIGRAM
     Route: 048
     Dates: start: 20190731
  17. NEBILET [Concomitant]
     Active Substance: NEBIVOLOL
     Dosage: 5 MILLIGRAM
     Route: 048
     Dates: start: 20190731, end: 20190817
  18. NEBILET [Concomitant]
     Active Substance: NEBIVOLOL
     Indication: HYPERTENSION
     Route: 048
     Dates: start: 20190629

REACTIONS (2)
  - Drug-induced liver injury [Not Recovered/Not Resolved]
  - Hepatic failure [Not Recovered/Not Resolved]

NARRATIVE: CASE EVENT DATE: 20190802
